FAERS Safety Report 9901702 (Version 4)
Quarter: 2014Q1

REPORT INFORMATION
  Report Type: Report from Study
  Country: FR (occurrence: FR)
  Receive Date: 20140217
  Receipt Date: 20140225
  Transmission Date: 20141002
  Serious: Yes (Hospitalization)
  Sender: FDA-Public Use
  Company Number: FR-ROCHE-1329598

PATIENT
  Age: 57 Year
  Sex: Female

DRUGS (22)
  1. PERTUZUMAB [Suspect]
     Indication: BREAST CANCER
     Dosage: DAY 1 OF CYCLE 1 (LOADING DOSE)?LAST DOSE PRIOR TO THE INCREASE OF PERICARDIAL EFFUSION: 02/OCT/2013
     Route: 042
     Dates: start: 20131002, end: 20131002
  2. PERTUZUMAB [Suspect]
     Dosage: MAINTENANCE DOSE?LAST DOSE PRIOR TO THE PERICARDIAL TAMPONADE: 04/DEC/2013
     Route: 042
     Dates: start: 20131023
  3. TRASTUZUMAB [Suspect]
     Indication: BREAST CANCER
     Dosage: DAY 1 OF CYCLE 1 (LOADING DOSE)?LAST DOSE PRIOR TO THE INCREASE OF PERICARDIAL EFFUSION: 02/OCT/2013
     Route: 042
     Dates: start: 20131002
  4. TRASTUZUMAB [Suspect]
     Dosage: MAINTENANCE DOSE?LAST DOSE PRIOR TO THE PERICARDIAL TAMPONADE: 04/DEC/2013
     Route: 042
     Dates: start: 20131023
  5. DOCETAXEL [Suspect]
     Indication: BREAST CANCER
     Dosage: LAST DOSE PRIOR TO THE PERICARDIAL TAMPONADE: 04/DEC/2013
     Route: 042
     Dates: start: 20131002
  6. DOCETAXEL [Suspect]
     Dosage: LAST DOSE PRIOR TO THE INCREASE OF PERICARDIAL EFFUSION: 03/OCT/2013
     Route: 042
     Dates: start: 20131003
  7. DOCETAXEL [Suspect]
     Dosage: LAST DOSE PRIOR TO THE INCREASE OF PERICARDIAL EFFUSION: 03/OCT/2013
     Route: 042
     Dates: start: 20131003
  8. LYRICA [Concomitant]
     Route: 065
     Dates: start: 20131001, end: 20131008
  9. LYRICA [Concomitant]
     Route: 065
     Dates: start: 20131008, end: 20131029
  10. SOLUPRED (FRANCE) [Concomitant]
     Route: 065
     Dates: start: 20131008, end: 20131018
  11. SOLUPRED (FRANCE) [Concomitant]
     Route: 065
     Dates: start: 20140104
  12. VERSATIS [Concomitant]
     Dosage: 2 UNITS
     Route: 065
     Dates: start: 20131008
  13. TAVANIC [Concomitant]
     Route: 065
     Dates: start: 20131016, end: 20131022
  14. LOVENOX [Concomitant]
     Route: 065
     Dates: start: 20131019, end: 20131027
  15. DAFALGAN [Concomitant]
     Route: 065
     Dates: start: 20131019, end: 20131027
  16. OMEPRAZOLE [Concomitant]
     Route: 065
     Dates: start: 20131008, end: 20131018
  17. NEULASTA [Concomitant]
     Route: 065
     Dates: start: 20131023
  18. VOGALENE [Concomitant]
     Route: 065
     Dates: start: 201310
  19. PARACETAMOL [Concomitant]
     Route: 065
     Dates: start: 20140104
  20. ACUPAN [Concomitant]
     Route: 065
     Dates: start: 20140104
  21. OXYNORM [Concomitant]
     Route: 065
     Dates: start: 20140104
  22. DIFFU-K [Concomitant]
     Route: 065
     Dates: start: 20140111

REACTIONS (2)
  - Cardiac tamponade [Recovered/Resolved]
  - Pericardial effusion [Recovered/Resolved]
